FAERS Safety Report 21502165 (Version 1)
Quarter: 2022Q4

REPORT INFORMATION
  Report Type: Spontaneous
  Country: US (occurrence: US)
  Receive Date: 20221025
  Receipt Date: 20221025
  Transmission Date: 20230113
  Serious: No
  Sender: FDA-Public Use
  Company Number: US-TAKEDA-2022TUS074420

PATIENT
  Sex: Male
  Weight: 100 kg

DRUGS (5)
  1. .ALPHA.1-PROTEINASE INHIBITOR HUMAN [Suspect]
     Active Substance: .ALPHA.1-PROTEINASE INHIBITOR HUMAN
     Indication: Emphysema
     Dosage: 5500 MILLIGRAM, 1/WEEK
     Route: 042
  2. .ALPHA.1-PROTEINASE INHIBITOR HUMAN [Suspect]
     Active Substance: .ALPHA.1-PROTEINASE INHIBITOR HUMAN
     Indication: Emphysema
     Dosage: 5500 MILLIGRAM, 1/WEEK
     Route: 042
  3. AZELASTINE [Concomitant]
     Active Substance: AZELASTINE
     Indication: Nasal decongestion therapy
  4. DULERA [Concomitant]
     Active Substance: FORMOTEROL FUMARATE DIHYDRATE\MOMETASONE FUROATE
  5. VENTOLIN [Concomitant]
     Active Substance: ALBUTEROL SULFATE

REACTIONS (5)
  - Haemoptysis [Unknown]
  - Pain [Unknown]
  - Dyspnoea [Unknown]
  - Chills [Unknown]
  - Pyrexia [Recovered/Resolved]
